FAERS Safety Report 12899464 (Version 1)
Quarter: 2016Q4

REPORT INFORMATION
  Report Type: Report from Study
  Country: US (occurrence: US)
  Receive Date: 20161101
  Receipt Date: 20161101
  Transmission Date: 20170207
  Serious: Yes (Other)
  Sender: FDA-Public Use
  Company Number: US-AMGEN-USASL2016128029

PATIENT
  Age: 73 Year
  Sex: Female
  Weight: 44.44 kg

DRUGS (11)
  1. PROLIA [Suspect]
     Active Substance: DENOSUMAB
     Indication: OSTEOPOROSIS
     Dosage: UNK
     Route: 065
     Dates: end: 20160311
  2. LEVOTHYROXINE. [Concomitant]
     Active Substance: LEVOTHYROXINE
     Dosage: 100 MUG, QD
     Route: 048
     Dates: start: 20161010
  3. PROTONIX [Concomitant]
     Active Substance: PANTOPRAZOLE SODIUM
     Dosage: 40 MG, QD (DELAYED RELEASE)
     Route: 048
     Dates: start: 20140911
  4. REQUIP [Concomitant]
     Active Substance: ROPINIROLE HYDROCHLORIDE
     Dosage: 1 MG, QD
     Route: 048
     Dates: start: 20160908
  5. MIRALAX [Concomitant]
     Active Substance: POLYETHYLENE GLYCOL 3350
     Dosage: 17 G, QD
     Route: 048
     Dates: start: 20160822
  6. DESYREL [Concomitant]
     Active Substance: TRAZODONE HYDROCHLORIDE
     Dosage: 50 MG, QD
     Route: 048
     Dates: start: 20160311
  7. CYTOMEL [Concomitant]
     Active Substance: LIOTHYRONINE SODIUM
     Dosage: 10 MUG, QD (2 TABLETS)
     Route: 048
     Dates: start: 20161010
  8. NORVASC [Concomitant]
     Active Substance: AMLODIPINE BESYLATE
     Dosage: 2.5 MG, QD
     Route: 048
     Dates: start: 20160822
  9. PROCTOZONE-H [Concomitant]
     Dosage: (2.5 %), BID
     Route: 054
     Dates: start: 20160822
  10. ANUSOL-HC [Concomitant]
     Dosage: (2.5 %), BID
     Route: 054
     Dates: start: 20160822
  11. VALTREX [Concomitant]
     Active Substance: VALACYCLOVIR HYDROCHLORIDE
     Dosage: 1 G, UNK
     Route: 048
     Dates: start: 20150714

REACTIONS (7)
  - Lumbar vertebral fracture [Unknown]
  - Back pain [Unknown]
  - Compression fracture [Unknown]
  - Oedema [Unknown]
  - Osteosclerosis [Unknown]
  - Back injury [Recovered/Resolved]
  - Body height decreased [Unknown]

NARRATIVE: CASE EVENT DATE: 2016
